FAERS Safety Report 7016853-7 (Version None)
Quarter: 2010Q3

REPORT INFORMATION
  Report Type: 
  Country: None (occurrence: None)
  Receive Date: 20100927
  Receipt Date: 20100922
  Transmission Date: 20110219
  Serious: Yes (Hospitalization)
  Sender: FDA-Public Use
  Company Number: GB-AMGEN-KDC440088

PATIENT
  Sex: Male

DRUGS (14)
  1. VECTIBIX [Suspect]
     Indication: GASTROOESOPHAGEAL CANCER
     Dates: start: 20100424
  2. EPIRUBICIN [Suspect]
     Dates: start: 20100424
  3. OXALIPLATIN [Suspect]
     Dates: start: 20100424
  4. CAPECITABINE [Suspect]
     Dates: start: 20100424
  5. DOCUSATE SODIUM [Concomitant]
     Dates: start: 20100420
  6. METRONIDAZOLE [Concomitant]
     Dates: start: 20100501, end: 20100512
  7. MAGNESIUM ASPARTATE [Concomitant]
     Dates: start: 20100420
  8. LISINOPRIL [Concomitant]
     Dates: end: 20100421
  9. TRAMADOL [Concomitant]
  10. ZOPICLONE [Concomitant]
     Dates: start: 20100415
  11. ONDANSETRON [Concomitant]
     Dates: start: 20100421
  12. METOCLOPRAMIDE [Concomitant]
     Dates: start: 20100420
  13. CYCLIZINE [Concomitant]
     Dates: start: 20100401
  14. DIFFLAM [Concomitant]
     Route: 048
     Dates: start: 20100501

REACTIONS (4)
  - DIARRHOEA [None]
  - FEBRILE NEUTROPENIA [None]
  - INFECTION [None]
  - NAUSEA [None]
